FAERS Safety Report 21848283 (Version 2)
Quarter: 2023Q1

REPORT INFORMATION
  Report Type: Spontaneous
  Country: CZ (occurrence: CZ)
  Receive Date: 20230111
  Receipt Date: 20230130
  Transmission Date: 20230417
  Serious: Yes (Hospitalization, Other)
  Sender: FDA-Public Use
  Company Number: CZ-009507513-2301CZE002498

PATIENT
  Sex: Female
  Weight: 104 kg

DRUGS (1)
  1. KEYTRUDA [Suspect]
     Active Substance: PEMBROLIZUMAB
     Indication: Non-small cell lung cancer
     Dosage: 200 MG. FREQUENCY EVERY 3 WEEKS
     Dates: start: 202001, end: 202112

REACTIONS (14)
  - Deep vein thrombosis [Recovering/Resolving]
  - Diabetes mellitus [Unknown]
  - Dyspnoea [Unknown]
  - Folliculitis [Recovering/Resolving]
  - Weight increased [Unknown]
  - Cervicobrachial syndrome [Recovering/Resolving]
  - Lymphoedema [Recovering/Resolving]
  - Osteoarthritis [Unknown]
  - Herpes zoster [Unknown]
  - Chest pain [Recovering/Resolving]
  - Paraesthesia [Recovering/Resolving]
  - Back pain [Recovering/Resolving]
  - Contrast media allergy [Unknown]
  - Adrenal adenoma [Unknown]

NARRATIVE: CASE EVENT DATE: 20210101
